FAERS Safety Report 7071589-1 (Version None)
Quarter: 2010Q4

REPORT INFORMATION
  Report Type: 
  Country: None (occurrence: None)
  Receive Date: 20101029
  Receipt Date: 20090924
  Transmission Date: 20110411
  Serious: Yes (Other)
  Sender: FDA-Public Use
  Company Number: A0808878A

PATIENT
  Age: 35 Year
  Sex: Female

DRUGS (11)
  1. ADVAIR DISKUS 100/50 [Suspect]
     Indication: ASTHMA
     Dosage: 1PUFF TWICE PER DAY
     Route: 055
     Dates: start: 20080101
  2. BENADRYL [Concomitant]
  3. LISINOPRIL [Concomitant]
  4. PRILOSEC [Concomitant]
  5. ZANAFLEX [Concomitant]
  6. HYDROCODONE [Concomitant]
  7. MOTRIN [Concomitant]
  8. AMITRIPTYLINE HCL [Concomitant]
  9. XANAX [Concomitant]
  10. DIAZEPAM [Concomitant]
  11. MULTI-VITAMINS [Concomitant]

REACTIONS (2)
  - ASTHMA [None]
  - DYSPNOEA [None]
